FAERS Safety Report 9256791 (Version 1)
Quarter: 2013Q2

REPORT INFORMATION
  Report Type: Spontaneous
  Country: US (occurrence: None)
  Receive Date: 20130423
  Receipt Date: 20130423
  Transmission Date: 20140414
  Serious: No
  Sender: FDA-Public Use
  Company Number: None

PATIENT
  Age: 52 Year
  Sex: Female
  Weight: 56.3 kg

DRUGS (2)
  1. FOSAPREPITANT [Suspect]
     Indication: PREMEDICATION
     Dosage: 150 MG  ONCE  IV BOLUS?20-30 MINUTES
     Route: 040
     Dates: start: 20130419, end: 20130419
  2. FOSAPREPITANT [Suspect]
     Indication: CHEMOTHERAPY
     Dosage: 150 MG  ONCE  IV BOLUS?20-30 MINUTES
     Route: 040
     Dates: start: 20130419, end: 20130419

REACTIONS (3)
  - Dyspnoea [None]
  - Erythema [None]
  - Infusion related reaction [None]
